FAERS Safety Report 6694323-3 (Version None)
Quarter: 2010Q2

REPORT INFORMATION
  Report Type: 
  Country: None (occurrence: None)
  Receive Date: 20100423
  Receipt Date: 20100413
  Transmission Date: 20101027
  Serious: Yes (Other)
  Sender: FDA-Public Use
  Company Number: JP-PFIZER INC-2010040183

PATIENT
  Age: 67 Year
  Sex: Male

DRUGS (1)
  1. ALDACTONE [Suspect]
     Dosage: 50 MG, DAILY
     Route: 048
     Dates: start: 20090901

REACTIONS (1)
  - NEUROPATHY PERIPHERAL [None]
